FAERS Safety Report 16826327 (Version 2)
Quarter: 2019Q3

REPORT INFORMATION
  Report Type: Spontaneous
  Country: US (occurrence: US)
  Receive Date: 20190919
  Receipt Date: 20190923
  Transmission Date: 20191005
  Serious: No
  Sender: FDA-Public Use
  Company Number: US-JNJFOC-20190915705

PATIENT

DRUGS (1)
  1. ROGAINE [Suspect]
     Active Substance: MINOXIDIL
     Indication: ALOPECIA
     Dosage: EVERY DAY
     Route: 061

REACTIONS (4)
  - Product formulation issue [Unknown]
  - Alopecia [Unknown]
  - Poor quality product administered [Unknown]
  - Hair texture abnormal [Unknown]
